FAERS Safety Report 5480900-4 (Version None)
Quarter: 2007Q4

REPORT INFORMATION
  Report Type: 
  Country: None (occurrence: None)
  Receive Date: 20071009
  Receipt Date: 20071001
  Transmission Date: 20080405
  Serious: Yes (Hospitalization)
  Sender: FDA-Public Use
  Company Number: CH-PFIZER INC-2007068727

PATIENT
  Age: 61 Year
  Sex: Female

DRUGS (10)
  1. SOMAVERT [Suspect]
     Indication: ACROMEGALY
     Route: 058
     Dates: start: 20050831, end: 20070819
  2. FLUCTINE [Suspect]
     Route: 048
     Dates: start: 20070101, end: 20070819
  3. INSULATARD [Concomitant]
  4. NOVORAPID [Concomitant]
  5. IRBESARTAN [Concomitant]
  6. NEBILET [Concomitant]
  7. ASPIRIN [Concomitant]
  8. AMITRIPTYLINE HCL [Concomitant]
  9. TEMESTA [Concomitant]
  10. OMEPRAZOLE [Concomitant]

REACTIONS (5)
  - AGRANULOCYTOSIS [None]
  - HAEMODIALYSIS [None]
  - INFECTION [None]
  - SEPSIS [None]
  - WHITE BLOOD CELL COUNT DECREASED [None]
